FAERS Safety Report 5443628-2 (Version None)
Quarter: 2007Q3

REPORT INFORMATION
  Report Type: 
  Country: None (occurrence: None)
  Receive Date: 20070905
  Receipt Date: 20070828
  Transmission Date: 20080115
  Serious: Yes (Hospitalization, Other)
  Sender: FDA-Public Use
  Company Number: PHHO2007CL10353

PATIENT
  Age: 65 Year
  Sex: Female

DRUGS (6)
  1. TAREG [Suspect]
     Indication: HYPERTENSION
     Dosage: 80 MG, QD
     Route: 048
  2. ATORVASTATIN [Concomitant]
     Dates: start: 20060101
  3. WELLBUTRIN [Concomitant]
  4. RAVOTRIL [Concomitant]
     Dates: start: 20060101
  5. SERTRALINE [Concomitant]
  6. CARDIOASPIRINA [Concomitant]

REACTIONS (5)
  - ARRHYTHMIA [None]
  - CARDIAC ARREST [None]
  - CARDIAC DISORDER [None]
  - CARDIAC PACEMAKER INSERTION [None]
  - FATIGUE [None]
